FAERS Safety Report 8952685 (Version 1)
Quarter: 2012Q4

REPORT INFORMATION
  Report Type: 
  Country: US (occurrence: US)
  Receive Date: 20121205
  Receipt Date: 20121205
  Transmission Date: 20130627
  Serious: Yes (Other)
  Sender: FDA-Public Use
  Company Number: US-ASTRAZENECA-2004UW14037

PATIENT
  Age: 71 Year
  Sex: Male
  Weight: 97.5 kg

DRUGS (5)
  1. ATACAND [Suspect]
     Route: 048
  2. CRESTOR [Suspect]
     Indication: HYPERCHOLESTEROLAEMIA
     Route: 048
  3. DIOVAN [Concomitant]
  4. VITAMINS [Concomitant]
  5. ASA [Concomitant]

REACTIONS (3)
  - Myocardial infarction [Unknown]
  - Arthralgia [Unknown]
  - Drug effect incomplete [Unknown]
